FAERS Safety Report 14162874 (Version 3)
Quarter: 2018Q1

REPORT INFORMATION
  Report Type: Report from Study
  Country: FI (occurrence: FI)
  Receive Date: 20171106
  Receipt Date: 20180109
  Transmission Date: 20180508
  Serious: Yes (Other)
  Sender: FDA-Public Use
  Company Number: FI-MYLANLABS-2017M1070044

PATIENT
  Age: 22 Year
  Sex: Male

DRUGS (6)
  1. LEPONEX [Suspect]
     Active Substance: CLOZAPINE
     Indication: PSYCHOTIC DISORDER
     Dosage: 175 MG, UNK
     Dates: start: 20170517, end: 2017
  2. LEPONEX [Suspect]
     Active Substance: CLOZAPINE
     Dosage: 6.25 MG, UNK
     Dates: start: 2017, end: 2017
  3. LITHIUM. [Concomitant]
     Active Substance: LITHIUM
     Indication: PRODUCT USED FOR UNKNOWN INDICATION
     Dosage: UNK
  4. LEPONEX [Suspect]
     Active Substance: CLOZAPINE
     Dosage: 12.5 MG, UNK
     Dates: start: 2017
  5. AMISULPRIDE [Concomitant]
     Active Substance: AMISULPRIDE
     Indication: PRODUCT USED FOR UNKNOWN INDICATION
     Dosage: UNK
  6. LEPONEX [Suspect]
     Active Substance: CLOZAPINE
     Dosage: UNK
     Dates: start: 20171113, end: 20171215

REACTIONS (6)
  - Arrhythmia [Unknown]
  - Eosinophil count increased [Not Recovered/Not Resolved]
  - Myocarditis [Recovered/Resolved]
  - Blood pressure increased [Unknown]
  - Heart rate increased [Unknown]
  - Hallucination [Unknown]

NARRATIVE: CASE EVENT DATE: 2017
